FAERS Safety Report 26060530 (Version 1)
Quarter: 2025Q4

REPORT INFORMATION
  Report Type: Spontaneous
  Country: US (occurrence: None)
  Receive Date: 20251118
  Receipt Date: 20251118
  Transmission Date: 20260117
  Serious: No
  Sender: FDA-CTU
  Company Number: None

PATIENT
  Age: 53 Year
  Sex: Male
  Weight: 139.71 kg

DRUGS (5)
  1. CORTICOTROPIN [Suspect]
     Active Substance: CORTICOTROPIN
     Indication: Gout
     Dosage: FREQUENCY : DAILY;?
     Route: 058
  2. Indomethacin Oral Capsule 20 MG [Concomitant]
  3. Decadron Oral Tablet 4 MG [Concomitant]
  4. Cortisone Acetate Powder [Concomitant]
  5. Allopurinol Oral Tablet 300 MG [Concomitant]

REACTIONS (2)
  - Drug ineffective [None]
  - Weight increased [None]

NARRATIVE: CASE EVENT DATE: 20251118
